FAERS Safety Report 5832352-X (Version None)
Quarter: 2008Q3

REPORT INFORMATION
  Report Type: 
  Country: None (occurrence: None)
  Receive Date: 20080731
  Receipt Date: 20080731
  Transmission Date: 20090109
  Serious: Yes (Death, Life-Threatening, Hospitalization)
  Sender: FDA-Public Use
  Company Number: None

PATIENT
  Age: 62 Year
  Sex: Male

DRUGS (11)
  1. CYCLOSPORINE 50MG/ML BEDFORD LABS [Suspect]
     Indication: HEART TRANSPLANT
     Dosage: 1.25 MG/HR CONTINUOUS  IV DRIP
     Route: 041
     Dates: start: 20070919, end: 20071002
  2. CYCLOSPORINE 50MG/ML BEDFORD LABS [Suspect]
     Indication: IMMUNOSUPPRESSION
     Dosage: 1.25 MG/HR CONTINUOUS  IV DRIP
     Route: 041
     Dates: start: 20070919, end: 20071002
  3. TACROLIMUS  5 MG/ML  FUJISAWA [Suspect]
     Indication: HEART TRANSPLANT
     Dosage: 0.05 MG/HR  CONTINUOUS  IV DRIP
     Route: 042
     Dates: start: 20071004, end: 20071008
  4. TACROLIMUS  5 MG/ML  FUJISAWA [Suspect]
     Indication: IMMUNOSUPPRESSION
     Dosage: 0.05 MG/HR  CONTINUOUS  IV DRIP
     Route: 042
     Dates: start: 20071004, end: 20071008
  5. DIGOXIN [Concomitant]
  6. FERROUS SULFATE TAB [Concomitant]
  7. WARFARIN SODIUM [Concomitant]
  8. SPIRONOLACTONE  6.25MG [Suspect]
  9. ATORVASTATIN [Concomitant]
  10. POTASSIUM CHLORIDE [Concomitant]
  11. ENALAPRIL MALEATE [Concomitant]

REACTIONS (15)
  - DEEP VEIN THROMBOSIS [None]
  - EROSIVE OESOPHAGITIS [None]
  - HYPERTHYROIDISM [None]
  - HYPOTENSION [None]
  - HYPOXIA [None]
  - PANCREATIC PSEUDOCYST [None]
  - PANCREATITIS [None]
  - PANCYTOPENIA [None]
  - POST PROCEDURAL COMPLICATION [None]
  - PULMONARY ALVEOLAR HAEMORRHAGE [None]
  - STAPHYLOCOCCAL BACTERAEMIA [None]
  - TACHYPNOEA [None]
  - THROMBOTIC THROMBOCYTOPENIC PURPURA [None]
  - UPPER GASTROINTESTINAL HAEMORRHAGE [None]
  - URINARY TRACT INFECTION FUNGAL [None]
